FAERS Safety Report 8129592-6 (Version None)
Quarter: 2012Q1

REPORT INFORMATION
  Report Type: 
  Country: None (occurrence: None)
  Receive Date: 20120210
  Receipt Date: 20120207
  Transmission Date: 20120608
  Serious: Yes (Congenital Anomaly)
  Sender: FDA-Public Use
  Company Number: US-GLAXOSMITHKLINE-A0963965A

PATIENT
  Sex: Female

DRUGS (2)
  1. MULTI-VITAMINS [Concomitant]
     Route: 064
  2. PAXIL [Suspect]
     Indication: PRODUCT USED FOR UNKNOWN INDICATION
     Route: 064
     Dates: start: 19940101

REACTIONS (4)
  - CONGENITAL DIAPHRAGMATIC HERNIA [None]
  - DEXTROCARDIA [None]
  - PLEURAL EFFUSION [None]
  - FOETAL EXPOSURE DURING PREGNANCY [None]
